FAERS Safety Report 14701332 (Version 2)
Quarter: 2018Q2

REPORT INFORMATION
  Report Type: Report from Study
  Country: None (occurrence: DE)
  Receive Date: 20180330
  Receipt Date: 20180413
  Transmission Date: 20180711
  Serious: Yes (Hospitalization, Other)
  Sender: FDA-Public Use
  Company Number: DE-BAUSCH-BL-2018-007749

PATIENT
  Age: 15 Year
  Sex: Male
  Weight: 106 kg

DRUGS (15)
  1. ETORICOXIB [Concomitant]
     Active Substance: ETORICOXIB
  2. ROACTEMRA [Suspect]
     Active Substance: TOCILIZUMAB
     Indication: STILL^S DISEASE
     Dosage: ONCE IN 2 WEEKS
     Route: 042
     Dates: start: 20150428
  3. PANTOPRAZOL [Suspect]
     Active Substance: PANTOPRAZOLE SODIUM
     Indication: STILL^S DISEASE
     Route: 065
     Dates: start: 20141204
  4. FOLIC ACID. [Concomitant]
     Active Substance: FOLIC ACID
     Indication: PRODUCT USED FOR UNKNOWN INDICATION
     Route: 048
     Dates: start: 20141204
  5. TOPIRAMAT [Concomitant]
     Active Substance: TOPIRAMATE
     Indication: EPILEPSY
     Route: 048
  6. PREDNISON [Suspect]
     Active Substance: PREDNISONE
     Indication: STILL^S DISEASE
     Route: 065
     Dates: start: 20150428
  7. ETORICOXIB [Concomitant]
     Active Substance: ETORICOXIB
     Indication: STILL^S DISEASE
     Route: 048
     Dates: start: 20160403
  8. ROACTEMRA [Suspect]
     Active Substance: TOCILIZUMAB
     Dosage: EVERY 4 WEEKS
     Route: 042
     Dates: start: 20141217
  9. PERAMPANEL [Concomitant]
     Active Substance: PERAMPANEL
     Indication: STILL^S DISEASE
     Route: 048
     Dates: start: 20160303
  10. METHOTREXAT [Suspect]
     Active Substance: METHOTREXATE
     Indication: STILL^S DISEASE
     Dosage: EVERY WEEK
     Route: 048
     Dates: start: 20141204
  11. ARCOXIA [Concomitant]
     Active Substance: ETORICOXIB
     Indication: PRODUCT USED FOR UNKNOWN INDICATION
     Route: 065
  12. DICLOFENAC [Suspect]
     Active Substance: DICLOFENAC
     Indication: STILL^S DISEASE
     Route: 048
     Dates: start: 20141217, end: 20150113
  13. FOLSAEURE [Concomitant]
     Active Substance: FOLIC ACID
     Indication: STILL^S DISEASE
     Route: 048
     Dates: start: 20141204
  14. OMEPRAZOL [Concomitant]
     Active Substance: OMEPRAZOLE
     Indication: STILL^S DISEASE
     Route: 048
     Dates: start: 20141217
  15. OXCARBAZEPIN [Concomitant]
     Active Substance: OXCARBAZEPINE
     Indication: EPILEPSY
     Route: 048
     Dates: start: 20160908

REACTIONS (8)
  - Fall [Unknown]
  - Hand fracture [Unknown]
  - Epilepsy [Recovered/Resolved]
  - Pneumonia aspiration [Recovered/Resolved]
  - Seizure [Recovered/Resolved]
  - Otitis media [Recovered/Resolved]
  - Craniocerebral injury [Unknown]
  - Sinusitis [Recovered/Resolved]

NARRATIVE: CASE EVENT DATE: 20150430
